FAERS Safety Report 6755808-4 (Version None)
Quarter: 2010Q2

REPORT INFORMATION
  Report Type: 
  Country: None (occurrence: None)
  Receive Date: 20100604
  Receipt Date: 20100526
  Transmission Date: 20101027
  Serious: Yes (Other)
  Sender: FDA-Public Use
  Company Number: CA-ASTRAZENECA-2010SE25045

PATIENT
  Age: 27754 Day
  Sex: Male
  Weight: 88 kg

DRUGS (10)
  1. CASODEX [Suspect]
     Indication: PROSTATE CANCER
     Route: 048
     Dates: start: 20100429
  2. ZOLADEX [Suspect]
     Indication: PROSTATE CANCER
     Dosage: EVERY THREE MONTHS
     Route: 058
     Dates: start: 20100429
  3. RADIOTHERAPY [Suspect]
     Indication: PROSTATE CANCER
     Route: 065
  4. TIAZAC [Concomitant]
     Indication: HYPERTENSION
     Route: 048
     Dates: start: 20030101
  5. COVERSYL [Concomitant]
     Indication: HYPERTELORISM OF ORBIT
     Route: 048
     Dates: start: 20030101
  6. ASAPHEN [Concomitant]
     Route: 048
     Dates: start: 20030101
  7. RANITIDINE [Concomitant]
     Route: 048
     Dates: start: 20030101
  8. FLOMAX [Concomitant]
     Route: 048
     Dates: start: 20090101
  9. HYDROXYUREA [Concomitant]
     Route: 048
     Dates: start: 20040101
  10. CRESTOR [Concomitant]
     Indication: DYSLIPIDAEMIA
     Route: 048
     Dates: start: 20030101

REACTIONS (1)
  - URINARY TRACT OBSTRUCTION [None]
